FAERS Safety Report 7556202-9 (Version None)
Quarter: 2011Q2

REPORT INFORMATION
  Report Type: 
  Country: None (occurrence: None)
  Receive Date: 20110620
  Receipt Date: 20100212
  Transmission Date: 20111010
  Serious: No
  Sender: FDA-Public Use
  Company Number: 2010BI005326

PATIENT
  Sex: Female

DRUGS (1)
  1. TYSABRI [Suspect]
     Indication: MULTIPLE SCLEROSIS
     Route: 042
     Dates: start: 20070410

REACTIONS (8)
  - HEMIPARESIS [None]
  - MUSCULAR WEAKNESS [None]
  - ABASIA [None]
  - ANXIETY [None]
  - ALTERED VISUAL DEPTH PERCEPTION [None]
  - MUSCULOSKELETAL STIFFNESS [None]
  - VISUAL IMPAIRMENT [None]
  - SOMNOLENCE [None]
